FAERS Safety Report 18305907 (Version 1)
Quarter: 2020Q3

REPORT INFORMATION
  Report Type: Spontaneous
  Country: US (occurrence: US)
  Receive Date: 20200923
  Receipt Date: 20200923
  Transmission Date: 20201103
  Serious: Yes (Other)
  Sender: FDA-Public Use
  Company Number: None

PATIENT
  Age: 29 Year
  Sex: Female
  Weight: 54.43 kg

DRUGS (6)
  1. VITAMIN B COMPLEX [Concomitant]
     Active Substance: CYANOCOBALAMIN\DEXPANTHENOL\NIACINAMIDE\PYRIDOXINE HYDROCHLORIDE\RIBOFLAVIN 5^-PHOSPHATE SODIUM\THIAMINE HYDROCHLORIDE\VITAMIN B COMPLEX
  2. CALTRATE [Concomitant]
     Active Substance: CALCIUM CARBONATE
  3. FLONASE [Concomitant]
     Active Substance: FLUTICASONE PROPIONATE
  4. KYLEENA [Suspect]
     Active Substance: LEVONORGESTREL
  5. ACYCLOVIR. [Concomitant]
     Active Substance: ACYCLOVIR
  6. WOMEN^S DAILY VITAMIN [Concomitant]

REACTIONS (8)
  - Headache [None]
  - Feeling abnormal [None]
  - Asthenia [None]
  - Hypoaesthesia [None]
  - Chest pain [None]
  - Vitamin D deficiency [None]
  - Dizziness [None]
  - Bone pain [None]

NARRATIVE: CASE EVENT DATE: 20200914
